FAERS Safety Report 10368812 (Version 1)
Quarter: 2014Q3

REPORT INFORMATION
  Report Type: Spontaneous
  Country: BR (occurrence: BR)
  Receive Date: 20140807
  Receipt Date: 20140807
  Transmission Date: 20150326
  Serious: Yes (Hospitalization, Other)
  Sender: FDA-Public Use
  Company Number: BR-PFIZER INC-2014217265

PATIENT
  Age: 82 Year
  Sex: Male
  Weight: 60 kg

DRUGS (9)
  1. ALENIA [Concomitant]
     Active Substance: BUDESONIDE\FORMOTEROL FUMARATE
     Dosage: UNK
  2. LIPITOR [Suspect]
     Active Substance: ATORVASTATIN CALCIUM
     Indication: CARDIAC DISORDER
     Dosage: 40 MG, DAILY
     Route: 048
     Dates: start: 2012
  3. ALDACTONE [Concomitant]
     Active Substance: SPIRONOLACTONE
     Dosage: 1 UNIT DAILY
     Dates: start: 2012
  4. DIGOXIN. [Concomitant]
     Active Substance: DIGOXIN
     Dosage: 3X/WEEK (MONDAY/ WEDNESDAY AND FRIDAY)
  5. ANCORON [Concomitant]
     Active Substance: AMIODARONE HYDROCHLORIDE
     Indication: CARDIAC DISORDER
     Dosage: UNK
  6. CONCOR [Concomitant]
     Active Substance: BISOPROLOL FUMARATE
     Dosage: UNK
  7. DIOVAN [Concomitant]
     Active Substance: VALSARTAN
     Dosage: 1 UNIT DAILY
  8. LASIX [Concomitant]
     Active Substance: FUROSEMIDE
     Dosage: 1 UNIT DAILY
  9. ASPIRINA INFANTIL [Concomitant]
     Dosage: UNK

REACTIONS (5)
  - Arrhythmia [Unknown]
  - Pneumonia [Unknown]
  - Erysipelas [Unknown]
  - Erysipelas [Unknown]
  - Cardiac disorder [Unknown]

NARRATIVE: CASE EVENT DATE: 2012
